FAERS Safety Report 21994521 (Version 1)
Quarter: 2023Q1

REPORT INFORMATION
  Report Type: Spontaneous
  Country: US (occurrence: US)
  Receive Date: 20230215
  Receipt Date: 20230215
  Transmission Date: 20230417
  Serious: Yes (Other)
  Sender: FDA-Public Use
  Company Number: US-MYLANLABS-2023M1016735

PATIENT
  Age: 64 Year
  Sex: Male

DRUGS (7)
  1. DOXORUBICIN [Suspect]
     Active Substance: DOXORUBICIN
     Indication: Acute leukaemia
     Dosage: UNK UNK, CYCLE
     Route: 065
  2. PREDNISONE [Suspect]
     Active Substance: PREDNISONE
     Indication: Acute leukaemia
     Dosage: UNK UNK, CYCLE
     Route: 065
  3. METHOTREXATE [Suspect]
     Active Substance: METHOTREXATE
     Indication: Acute leukaemia
     Dosage: UNK, CYCLE (DOSE: HIGH DOSE)
     Route: 065
  4. CYTARABINE [Suspect]
     Active Substance: CYTARABINE
     Indication: Acute leukaemia
     Dosage: UNK, CYCLE
     Route: 065
  5. CYCLOPHOSPHAMIDE [Suspect]
     Active Substance: CYCLOPHOSPHAMIDE
     Indication: Acute leukaemia
     Dosage: UNK UNK, CYCLE
     Route: 065
  6. VINCRISTINE [Suspect]
     Active Substance: VINCRISTINE
     Indication: Acute leukaemia
     Dosage: UNK UNK, CYCLE
     Route: 065
  7. BLINATUMOMAB [Concomitant]
     Active Substance: BLINATUMOMAB
     Indication: Acute leukaemia
     Dosage: UNK UNK, CYCLE
     Route: 065

REACTIONS (1)
  - Drug ineffective [Unknown]
